FAERS Safety Report 14172024 (Version 1)
Quarter: 2017Q4

REPORT INFORMATION
  Report Type: Spontaneous
  Country: FR (occurrence: FR)
  Receive Date: 20171108
  Receipt Date: 20171108
  Transmission Date: 20180321
  Serious: Yes (Other)
  Sender: FDA-Public Use
  Company Number: FR-MERCK KGAA-2033604

PATIENT
  Sex: Female

DRUGS (3)
  1. LEVOTHYROX [Suspect]
     Active Substance: LEVOTHYROXINE
  2. LEVOTHYROX [Suspect]
     Active Substance: LEVOTHYROXINE
  3. NOVOTHYROX [Suspect]
     Active Substance: LEVOTHYROXINE SODIUM
     Indication: HYPOTHYROIDISM

REACTIONS (12)
  - Fatigue [None]
  - Blood thyroid stimulating hormone increased [None]
  - Hyperhidrosis [None]
  - Depression [None]
  - Feeling abnormal [None]
  - Insomnia [None]
  - Gastrointestinal disorder [None]
  - Suicidal ideation [None]
  - Mood altered [None]
  - Palpitations [None]
  - Abdominal distension [None]
  - Blood thyroid stimulating hormone decreased [None]

NARRATIVE: CASE EVENT DATE: 20171005
